FAERS Safety Report 10460901 (Version 1)
Quarter: 2014Q3

REPORT INFORMATION
  Report Type: Spontaneous
  Country: US (occurrence: None)
  Receive Date: 20140917
  Receipt Date: 20140917
  Transmission Date: 20150326
  Serious: No
  Sender: FDA-Public Use
  Company Number: None

PATIENT
  Age: 3 Year
  Sex: Female
  Weight: 16 kg

DRUGS (1)
  1. OXCARBAZEPINE. [Suspect]
     Active Substance: OXCARBAZEPINE
     Indication: PARTIAL SEIZURES
     Route: 048
     Dates: start: 20130123, end: 20130211

REACTIONS (3)
  - Convulsion [None]
  - Product substitution issue [None]
  - Condition aggravated [None]

NARRATIVE: CASE EVENT DATE: 20130215
